FAERS Safety Report 6271328-8 (Version None)
Quarter: 2009Q3

REPORT INFORMATION
  Report Type: 
  Country: None (occurrence: None)
  Receive Date: 20090717
  Receipt Date: 20090709
  Transmission Date: 20100115
  Serious: Yes (Other)
  Sender: FDA-Public Use
  Company Number: US-KINGPHARMUSA00001-K200900815

PATIENT

DRUGS (1)
  1. ALTACE [Suspect]
     Indication: HYPERTENSION
     Dosage: 2.5 MG, QD
     Dates: start: 20070101

REACTIONS (5)
  - COUGH [None]
  - DEPRESSION [None]
  - EXCESSIVE EYE BLINKING [None]
  - HEADACHE [None]
  - RETINAL INJURY [None]
